FAERS Safety Report 9458910 (Version 2)
Quarter: 2013Q3

REPORT INFORMATION
  Report Type: Report from Study
  Country: LB (occurrence: LB)
  Receive Date: 20130814
  Receipt Date: 20130815
  Transmission Date: 20140515
  Serious: Yes (Death)
  Sender: FDA-Public Use
  Company Number: LB-GLAXOSMITHKLINE-B0915205A

PATIENT
  Age: 35 Year
  Sex: Female
  Weight: 75 kg

DRUGS (1)
  1. NELARABINE [Suspect]
     Indication: NON-HODGKIN^S LYMPHOMA
     Dosage: 1500MGM2 PER DAY
     Dates: start: 20130307, end: 20130402

REACTIONS (1)
  - Septic shock [Fatal]
